FAERS Safety Report 7435388-0 (Version None)
Quarter: 2011Q2

REPORT INFORMATION
  Report Type: 
  Country: None (occurrence: None)
  Receive Date: 20110425
  Receipt Date: 20100908
  Transmission Date: 20111010
  Serious: Yes (Hospitalization, Other)
  Sender: FDA-Public Use
  Company Number: US-BAYER-200943673NA

PATIENT
  Age: 21 Year
  Sex: Female
  Weight: 65 kg

DRUGS (6)
  1. DETROAMPHETAMINE [Concomitant]
     Indication: FATIGUE
     Dosage: UNK
     Dates: start: 20090401
  2. IBUPROFEN [Concomitant]
     Dosage: UNK
     Dates: start: 20090101
  3. YAZ [Suspect]
     Indication: PREMENSTRUAL SYNDROME
  4. YAZ [Suspect]
     Indication: CONTRACEPTION
     Dosage: 1 TAB/DAY
     Dates: start: 20070722, end: 20100701
  5. ALEVE [Concomitant]
     Dosage: UNK
     Dates: start: 20090101
  6. NONSTEROIDAL PILL [Concomitant]
     Indication: FLUID RETENTION
     Dosage: UNK
     Dates: start: 20090201

REACTIONS (5)
  - CARDIOVASCULAR DISORDER [None]
  - DEEP VEIN THROMBOSIS [None]
  - PAIN [None]
  - HYPOAESTHESIA [None]
  - SKIN DISCOLOURATION [None]
